FAERS Safety Report 11139969 (Version 2)
Quarter: 2015Q2

REPORT INFORMATION
  Report Type: Spontaneous
  Country: US (occurrence: US)
  Receive Date: 20150527
  Receipt Date: 20150615
  Transmission Date: 20150821
  Serious: No
  Sender: FDA-Public Use
  Company Number: US-PFIZER INC-2015174124

PATIENT
  Sex: Male

DRUGS (2)
  1. BACTRIM DS [Suspect]
     Active Substance: SULFAMETHOXAZOLE\TRIMETHOPRIM
     Dosage: 800/160 MG,  2X/DAY
     Route: 048
     Dates: start: 20150501, end: 20150507
  2. BACITRACIN. [Suspect]
     Active Substance: BACITRACIN
     Dosage: UNK

REACTIONS (3)
  - Pruritus [Unknown]
  - Rash [Recovered/Resolved]
  - Drug hypersensitivity [Unknown]
